FAERS Safety Report 8068349-1 (Version None)
Quarter: 2012Q1

REPORT INFORMATION
  Report Type: 
  Country: None (occurrence: None)
  Receive Date: 20120124
  Receipt Date: 20111013
  Transmission Date: 20120608
  Serious: No
  Sender: FDA-Public Use
  Company Number: US-AMGEN-USASP2011052943

PATIENT
  Age: 79 Year
  Sex: Female

DRUGS (4)
  1. NIACIN [Concomitant]
     Dosage: 1 MG, QD
  2. PRAVASTATIN [Concomitant]
     Dosage: UNK UNK, QD
  3. OMEPRAZOLE [Concomitant]
  4. PROLIA [Suspect]
     Indication: OSTEOPOROSIS POSTMENOPAUSAL
     Dosage: 60 MG, Q6MO
     Dates: start: 20110706

REACTIONS (1)
  - CYSTITIS [None]
